FAERS Safety Report 16907791 (Version 1)
Quarter: 2019Q4

REPORT INFORMATION
  Report Type: Spontaneous
  Country: US (occurrence: US)
  Receive Date: 20190819
  Receipt Date: 20190819
  Transmission Date: 20200122
  Serious: No
  Sender: FDA-Public Use
  Company Number: None

PATIENT
  Age: 62 Year
  Sex: Female

DRUGS (16)
  1. CALCIUM CARBONATE-VIT D3 [Concomitant]
  2. LOSARTAN. [Concomitant]
     Active Substance: LOSARTAN
  3. PHENYTOIN. [Concomitant]
     Active Substance: PHENYTOIN
  4. ATORVASTATIN [Concomitant]
     Active Substance: ATORVASTATIN
  5. RIFAXIMIN. [Concomitant]
     Active Substance: RIFAXIMIN
  6. IPRATROPIUM [Concomitant]
     Active Substance: IPRATROPIUM
  7. FERROUS SULFATE. [Concomitant]
     Active Substance: FERROUS SULFATE
  8. LACTULOSE. [Concomitant]
     Active Substance: LACTULOSE
  9. URSODIOL. [Concomitant]
     Active Substance: URSODIOL
  10. FUROSEMIDE. [Concomitant]
     Active Substance: FUROSEMIDE
  11. CAPSAICIN. [Concomitant]
     Active Substance: CAPSAICIN
  12. METOPROLOL. [Concomitant]
     Active Substance: METOPROLOL
  13. AMBRISENTAN 10MG TABLETS 30/BO: 10MG [Suspect]
     Active Substance: AMBRISENTAN
     Indication: PULMONARY ARTERIAL HYPERTENSION
     Route: 048
     Dates: start: 201407
  14. OMEPRAZOLE. [Concomitant]
     Active Substance: OMEPRAZOLE
  15. POTASSIUM CHLORIDE. [Concomitant]
     Active Substance: POTASSIUM CHLORIDE
  16. SILDENAFIL. [Concomitant]
     Active Substance: SILDENAFIL

REACTIONS (2)
  - Presyncope [None]
  - Chest discomfort [None]

NARRATIVE: CASE EVENT DATE: 20190730
